FAERS Safety Report 5448608-9 (Version None)
Quarter: 2007Q3

REPORT INFORMATION
  Report Type: 
  Country: None (occurrence: None)
  Receive Date: 20070906
  Receipt Date: 20070906
  Transmission Date: 20080115
  Serious: Yes (Hospitalization)
  Sender: FDA-Public Use
  Company Number: None

PATIENT
  Sex: Male
  Weight: 87.5442 kg

DRUGS (11)
  1. DOXIL [Suspect]
     Indication: PROSTATE CANCER
     Dosage: 60 MG DAY 1 Q 28 DAYS IV DRIP
     Route: 041
     Dates: start: 20070802, end: 20070802
  2. TAXOTERE [Suspect]
     Indication: PROSTATE CANCER
     Dosage: 60 MG D 1,8,15 Q 28 IV DRIP
     Route: 041
     Dates: start: 20070802, end: 20070802
  3. PEPCID AC [Concomitant]
  4. ZOLADEX [Concomitant]
  5. ZOLOFT [Concomitant]
  6. HYDROCHLOROTHIAZIDE [Concomitant]
  7. ALLOPURINOL [Concomitant]
  8. METOPROLOL SUCCINATE [Concomitant]
  9. METHADONE [Concomitant]
  10. LORTAB [Concomitant]
  11. XANAX [Concomitant]

REACTIONS (5)
  - HAEMOGLOBIN DECREASED [None]
  - OCCULT BLOOD POSITIVE [None]
  - SPLENIC VEIN THROMBOSIS [None]
  - VARICOSE VEIN [None]
  - VENOUS STENOSIS [None]
